FAERS Safety Report 6379362-4 (Version None)
Quarter: 2009Q3

REPORT INFORMATION
  Report Type: 
  Country: None (occurrence: None)
  Receive Date: 20090928
  Receipt Date: 20090916
  Transmission Date: 20100115
  Serious: Yes (Other)
  Sender: FDA-Public Use
  Company Number: SE-AMGEN-UK360782

PATIENT
  Age: 52 Year
  Sex: Female

DRUGS (3)
  1. VECTIBIX [Suspect]
     Indication: PRE-EXISTING DISEASE
     Route: 065
     Dates: start: 20090819
  2. ELOXATIN (SANOFI) [Suspect]
     Route: 065
  3. XELODA [Concomitant]
     Route: 065

REACTIONS (3)
  - DYSPNOEA [None]
  - GASTRIC ULCER [None]
  - HYPERSENSITIVITY [None]
